FAERS Safety Report 8348964-8 (Version None)
Quarter: 2012Q2

REPORT INFORMATION
  Report Type: 
  Country: None (occurrence: None)
  Receive Date: 20120510
  Receipt Date: 20120430
  Transmission Date: 20120825
  Serious: Yes (Other)
  Sender: FDA-Public Use
  Company Number: AU-JNJFOC-20110808102

PATIENT
  Sex: Male

DRUGS (5)
  1. STELARA [Suspect]
     Route: 058
     Dates: start: 20110826
  2. STELARA [Suspect]
     Route: 058
     Dates: start: 20120301
  3. STELARA [Suspect]
     Indication: PSORIASIS
     Route: 058
     Dates: start: 20111115
  4. STELARA [Suspect]
     Route: 058
     Dates: start: 20110726
  5. STELARA [Suspect]
     Route: 058
     Dates: start: 20120430

REACTIONS (4)
  - PSORIASIS [None]
  - SKIN LESION [None]
  - SEBORRHOEIC KERATOSIS [None]
  - DIZZINESS [None]
